FAERS Safety Report 12541049 (Version 2)
Quarter: 2016Q3

REPORT INFORMATION
  Report Type: Report from Study
  Country: AR (occurrence: AR)
  Receive Date: 20160708
  Receipt Date: 20160729
  Transmission Date: 20161109
  Serious: Yes (Death, Life-Threatening, Hospitalization, Other)
  Sender: FDA-Public Use
  Company Number: AR-ABBVIE-16P-007-1670840-00

PATIENT
  Age: 75 Year
  Sex: Male
  Weight: 54.5 kg

DRUGS (1)
  1. ZEMPLAR [Suspect]
     Active Substance: PARICALCITOL
     Indication: HYPERPARATHYROIDISM SECONDARY
     Route: 042
     Dates: start: 20150818

REACTIONS (5)
  - Gastrointestinal haemorrhage [Fatal]
  - Bradyarrhythmia [Fatal]
  - General physical health deterioration [Fatal]
  - Colon cancer [Fatal]
  - Cardio-respiratory arrest [Fatal]

NARRATIVE: CASE EVENT DATE: 201605
